FAERS Safety Report 9133709 (Version 2)
Quarter: 2013Q2

REPORT INFORMATION
  Report Type: Spontaneous
  Country: GB (occurrence: GB)
  Receive Date: 20130303
  Receipt Date: 20130420
  Transmission Date: 20140414
  Serious: Yes (Other)
  Sender: FDA-Public Use
  Company Number: GB-US-EMD SERONO, INC.-7196110

PATIENT
  Age: 25 Year
  Sex: Female

DRUGS (2)
  1. SAIZEN [Suspect]
     Indication: GROWTH HORMONE DEFICIENCY
     Route: 058
     Dates: start: 20111128
  2. MENOPUR [Suspect]
     Indication: IN VITRO FERTILISATION
     Dates: start: 20130102, end: 20130118

REACTIONS (2)
  - Ectopic pregnancy [Recovered/Resolved]
  - Uterine polyp [Unknown]
